FAERS Safety Report 18405801 (Version 1)
Quarter: 2020Q4

REPORT INFORMATION
  Report Type: Spontaneous
  Country: US (occurrence: US)
  Receive Date: 20201018
  Receipt Date: 20201018
  Transmission Date: 20210114
  Serious: Yes (Other)
  Sender: FDA-Public Use
  Company Number: None

PATIENT
  Age: 5 Year
  Sex: Female

DRUGS (1)
  1. COLLECTIVE SCIENCE INTEGRATION HAND SANITIZER CONTAINS MIN. 70%ALCOHOL [Suspect]
     Active Substance: ALCOHOL
     Indication: COVID-19 PROPHYLAXIS
     Dates: start: 20201018, end: 20201018

REACTIONS (2)
  - Fatigue [None]
  - Malaise [None]

NARRATIVE: CASE EVENT DATE: 20201018
